FAERS Safety Report 7702157-3 (Version None)
Quarter: 2011Q3

REPORT INFORMATION
  Report Type: 
  Country: None (occurrence: None)
  Receive Date: 20110822
  Receipt Date: 20110809
  Transmission Date: 20111222
  Serious: Yes (Other)
  Sender: FDA-Public Use
  Company Number: FR-MYLANLABS-2011S1016495

PATIENT
  Age: 49 Year
  Sex: Male

DRUGS (1)
  1. ACEBUTOLOL [Suspect]
     Dates: start: 20101201

REACTIONS (2)
  - DRUG DISPENSING ERROR [None]
  - NO ADVERSE EVENT [None]
